FAERS Safety Report 7069018-7 (Version None)
Quarter: 2010Q4

REPORT INFORMATION
  Report Type: 
  Country: None (occurrence: None)
  Receive Date: 20101028
  Receipt Date: 20101022
  Transmission Date: 20110411
  Serious: Yes (Death)
  Sender: FDA-Public Use
  Company Number: US-BRISTOL-MYERS SQUIBB COMPANY-15312259

PATIENT
  Age: 76 Year
  Sex: Male

DRUGS (5)
  1. DASATINIB [Suspect]
     Indication: PROSTATE CANCER
     Route: 048
     Dates: start: 20100923
  2. PLACEBO [Suspect]
     Indication: PROSTATE CANCER
     Route: 048
     Dates: start: 20100923
  3. NAPROXEN [Concomitant]
     Dates: start: 20100909
  4. LUPRON [Concomitant]
     Dates: start: 20091030
  5. FLOMAX [Concomitant]
     Dates: start: 20100201

REACTIONS (2)
  - DEHYDRATION [None]
  - MALIGNANT NEOPLASM PROGRESSION [None]
